FAERS Safety Report 9464359 (Version 1)
Quarter: 2013Q3

REPORT INFORMATION
  Report Type: Spontaneous
  Country: NL (occurrence: NL)
  Receive Date: 20130819
  Receipt Date: 20130819
  Transmission Date: 20140515
  Serious: Yes (Other)
  Sender: FDA-Public Use
  Company Number: NL-PFIZER INC-2013238510

PATIENT
  Sex: Female

DRUGS (3)
  1. VENLAFAXINE HCL [Suspect]
     Indication: BORDERLINE PERSONALITY DISORDER
     Dosage: 150 MG, DAILY
  2. FOLIC ACID [Concomitant]
     Dosage: 0.5 MG, UNK
  3. VENTOLIN [Concomitant]
     Dosage: 200 UG, 1X/DAY

REACTIONS (2)
  - Off label use [Unknown]
  - Pre-eclampsia [Unknown]
